FAERS Safety Report 19420637 (Version 1)
Quarter: 2021Q2

REPORT INFORMATION
  Report Type: Spontaneous
  Country: IN (occurrence: IN)
  Receive Date: 20210616
  Receipt Date: 20210616
  Transmission Date: 20210717
  Serious: No
  Sender: FDA-Public Use
  Company Number: IN-LUPIN LIMITED-2021-03642

PATIENT
  Age: 65 Year
  Sex: Male
  Weight: 65 kg

DRUGS (3)
  1. SALBAIR RESPICAPS (ALBUTEROL SULFATE) [Suspect]
     Active Substance: ALBUTEROL SULFATE
     Indication: ASTHMA
     Dosage: UNK, PRN (AS NEEDED, WHEN THE CONDITIONS ARE WORSENED)
     Route: 048
  2. TIATE TRANSCAPS [Suspect]
     Active Substance: TIOTROPIUM BROMIDE
     Indication: ASTHMA
     Dosage: UNK, QD (AFTERNOON)
     Route: 048
  3. ESIFLO RESPICAPS [Suspect]
     Active Substance: FLUTICASONE PROPIONATE\SALMETEROL XINAFOATE
     Indication: ASTHMA
     Dosage: UNK, BID (MORNING AND EVENING)
     Route: 048

REACTIONS (4)
  - Device issue [Unknown]
  - Incorrect dose administered [Unknown]
  - No adverse event [Unknown]
  - Drug dose omission by device [Unknown]
